FAERS Safety Report 8432852-2 (Version None)
Quarter: 2012Q2

REPORT INFORMATION
  Report Type: 
  Country: None (occurrence: None)
  Receive Date: 20120613
  Receipt Date: 20120606
  Transmission Date: 20120825
  Serious: Yes (Other)
  Sender: FDA-Public Use
  Company Number: NO-ROCHE-1034850

PATIENT
  Sex: Female
  Weight: 68 kg

DRUGS (14)
  1. ACETYLSALICYLIC ACID SRT [Concomitant]
  2. VITAMIN B-12 [Concomitant]
  3. LIPITOR [Concomitant]
  4. NUELIN [Concomitant]
  5. XOLAIR [Suspect]
     Indication: HYPERSENSITIVITY
  6. ZYRTEC [Concomitant]
  7. ATROVENT [Concomitant]
  8. LOVAZA [Concomitant]
  9. POTASSIUM CHLORIDE [Concomitant]
  10. SINGULAIR [Concomitant]
  11. PREDNISOLONE [Concomitant]
  12. TRISEQUENS [Concomitant]
  13. VENTOLIN [Concomitant]
  14. XOLAIR [Suspect]
     Indication: ASTHMA
     Dates: start: 20110501

REACTIONS (13)
  - HEADACHE [None]
  - HEART RATE INCREASED [None]
  - DYSPNOEA [None]
  - EYE SWELLING [None]
  - CHILLS [None]
  - DERMATITIS PSORIASIFORM [None]
  - SERUM SICKNESS [None]
  - HYPERSOMNIA [None]
  - PRURITUS [None]
  - VISION BLURRED [None]
  - ALOPECIA [None]
  - VISUAL IMPAIRMENT [None]
  - MALAISE [None]
